FAERS Safety Report 7414172-8 (Version None)
Quarter: 2011Q1

REPORT INFORMATION
  Report Type: 
  Country: None (occurrence: None)
  Receive Date: 20110302
  Receipt Date: 20110108
  Transmission Date: 20110831
  Serious: No
  Sender: FDA-Public Use
  Company Number: 018524

PATIENT
  Sex: Male

DRUGS (4)
  1. CIMZIA [Suspect]
  2. CIMZIA [Suspect]
     Indication: CROHN'S DISEASE
     Dosage: 400 MG 1X/28 DAYS SUBCUTANEOUS
     Route: 058
     Dates: start: 20090513
  3. VITAMIN D [Concomitant]
  4. POTASSIUM [Concomitant]

REACTIONS (5)
  - BACK PAIN [None]
  - URINARY TRACT INFECTION [None]
  - FREQUENT BOWEL MOVEMENTS [None]
  - FATIGUE [None]
  - INFECTION [None]
